FAERS Safety Report 5532021-X (Version None)
Quarter: 2007Q4

REPORT INFORMATION
  Report Type: 
  Country: None (occurrence: None)
  Receive Date: 20071203
  Receipt Date: 20071126
  Transmission Date: 20080405
  Serious: Yes (Other)
  Sender: FDA-Public Use
  Company Number: PHEH2005US11596

PATIENT
  Age: 53 Year
  Sex: Female
  Weight: 85.714 kg

DRUGS (18)
  1. VIVELLE [Suspect]
     Indication: HORMONE REPLACEMENT THERAPY
     Dosage: 0.05MG
     Route: 062
     Dates: start: 19981230
  2. VIVELLE [Suspect]
     Dosage: 0.025MG
     Route: 061
  3. PROMETRIUM [Suspect]
     Indication: HORMONE REPLACEMENT THERAPY
     Dosage: 100MG
     Dates: start: 19981230
  4. ESTRADIOL [Suspect]
     Indication: MENOPAUSE
     Dosage: 0.5MG
     Dates: start: 19990312
  5. GYNODIOL [Suspect]
     Indication: HORMONE REPLACEMENT THERAPY
  6. COMBIPATCH [Suspect]
     Indication: MENOPAUSE
     Dosage: 50/140MCG
     Dates: start: 19981219
  7. PREMPRO [Suspect]
     Indication: MENOPAUSE
     Dosage: 2.5MG
     Dates: start: 19980313
  8. ALDACTONE [Concomitant]
  9. PAXIL [Concomitant]
  10. WELLBUTRIN [Concomitant]
  11. PROZAC [Concomitant]
     Dosage: 10MG
  12. DYAZIDE [Concomitant]
     Dosage: 25MG
  13. ZYBAN [Concomitant]
     Dosage: 150MG
  14. HYDROCHLOROTHIAZIDE [Concomitant]
     Dosage: 50MG
  15. SPIRONOLACTONE [Concomitant]
     Dosage: 100MG
  16. XENICAL [Concomitant]
     Dosage: 120MG
  17. MIACALCIN [Concomitant]
     Dates: start: 20031101
  18. AROMASIN [Concomitant]

REACTIONS (18)
  - ABDOMINAL DISTENSION [None]
  - ANXIETY [None]
  - BONE PAIN [None]
  - BREAST CANCER [None]
  - BREAST PAIN [None]
  - CARDIAC MURMUR [None]
  - INTERVERTEBRAL DISC DISORDER [None]
  - LYMPH NODE FIBROSIS [None]
  - LYMPHOEDEMA [None]
  - MALIGNANT BREAST LUMP REMOVAL [None]
  - MITRAL VALVE INCOMPETENCE [None]
  - MUSCULOSKELETAL PAIN [None]
  - OEDEMA [None]
  - OEDEMA PERIPHERAL [None]
  - OSTEOARTHRITIS [None]
  - OSTEOPENIA [None]
  - RADIOTHERAPY [None]
  - UTERINE DISORDER [None]
